FAERS Safety Report 22043589 (Version 4)
Quarter: 2023Q1

REPORT INFORMATION
  Report Type: Report from Study
  Country: MX (occurrence: None)
  Receive Date: 20230228
  Receipt Date: 20230328
  Transmission Date: 20230418
  Serious: Yes (Hospitalization, Disabling)
  Sender: FDA-Public Use
  Company Number: MX-ROCHE-3218576

PATIENT
  Age: 80 Year
  Sex: Female
  Weight: 55.7 kg

DRUGS (18)
  1. ATEZOLIZUMAB [Suspect]
     Active Substance: ATEZOLIZUMAB
     Indication: Hepatocellular carcinoma
     Dosage: ON 18/AUG/2022, 07-FEB-2023 SHE RECEIVED MOST RECENT DOSE (1200 MG) OF ATEZOLIZUMAB.?DOSE LAST STUDY
     Route: 042
     Dates: start: 20220317
  2. BEVACIZUMAB [Suspect]
     Active Substance: BEVACIZUMAB
     Indication: Hepatocellular carcinoma
     Dosage: ON 18/AUG/2022, 27-DEC-2022 SHE RECEIVED MOST RECENT DOSE (924 MG) OF BEVACIZUMAB.?DOSE LAST STUDY D
     Route: 042
     Dates: start: 20220317
  3. BEVACIZUMAB [Suspect]
     Active Substance: BEVACIZUMAB
     Route: 042
     Dates: start: 20220317
  4. OMEPRAZOLE [Concomitant]
     Active Substance: OMEPRAZOLE
     Indication: Acid peptic disease
     Dates: start: 2018
  5. OMEPRAZOLE [Concomitant]
     Active Substance: OMEPRAZOLE
     Dates: start: 20230222, end: 20230223
  6. PROPRANOLOL HYDROCHLORIDE [Concomitant]
     Active Substance: PROPRANOLOL HYDROCHLORIDE
     Indication: Varices oesophageal
     Dates: start: 202009
  7. NEBIVOLOL [Concomitant]
     Active Substance: NEBIVOLOL
     Route: 048
     Dates: start: 20230107
  8. ACETAMINOPHEN [Concomitant]
     Active Substance: ACETAMINOPHEN
     Route: 042
     Dates: start: 20230222, end: 20230223
  9. LOPERAMIDE [Concomitant]
     Active Substance: LOPERAMIDE
     Route: 048
     Dates: start: 20230222, end: 20230223
  10. LOPERAMIDE [Concomitant]
     Active Substance: LOPERAMIDE
     Route: 048
     Dates: start: 20230223, end: 20230224
  11. SODIUM CHLORIDE [Concomitant]
     Active Substance: SODIUM CHLORIDE
     Dosage: 1000CC?INTRAVENOS CONTINUS INFUSION FOR 8?HOURS
     Route: 042
     Dates: start: 20230222, end: 20230224
  12. SODIUM CHLORIDE [Concomitant]
     Active Substance: SODIUM CHLORIDE
     Dosage: 1000CC?INTRAVENOS CONTINUS INFUSION FOR 24?HOURS
     Route: 042
     Dates: start: 20230224, end: 20230226
  13. SODIUM CHLORIDE [Concomitant]
     Active Substance: SODIUM CHLORIDE
     Dosage: 1000CC?INTRAVENOS CONTINUS INFUSION FOR 24?HOURS
     Route: 042
     Dates: start: 20230226, end: 20230226
  14. METAMIZOLE [Concomitant]
     Active Substance: METAMIZOLE
     Indication: Pyrexia
     Dosage: 1 GR
     Route: 042
     Dates: start: 20230222, end: 20230223
  15. PREDNISONE [Concomitant]
     Active Substance: PREDNISONE
     Route: 048
     Dates: start: 20230223
  16. RACECADOTRILO [Concomitant]
     Route: 048
     Dates: start: 20230223, end: 20230224
  17. MAGNESIUM SULFATE [Concomitant]
     Active Substance: MAGNESIUM SULFATE
     Dosage: INTRAVENOUS DURING 4 HOURS
     Dates: start: 20230223, end: 20230223
  18. HARTMAN [Concomitant]
     Dosage: INTRAVESNOUS CONTINOUS INFUSION?DURING 3 HOURS
     Dates: start: 20230225, end: 20230225

REACTIONS (3)
  - Hyperbilirubinaemia [Recovering/Resolving]
  - Diarrhoea [Recovering/Resolving]
  - Blood bilirubin increased [Recovered/Resolved with Sequelae]

NARRATIVE: CASE EVENT DATE: 20221110
